FAERS Safety Report 5222686-4 (Version None)
Quarter: 2007Q1

REPORT INFORMATION
  Report Type: 
  Country: None (occurrence: None)
  Receive Date: 20061208
  Receipt Date: 20051128
  Transmission Date: 20070707
  Serious: Yes (Other)
  Sender: FDA-Public Use
  Company Number: 2005160896

PATIENT
  Sex: Male
  Weight: 181.4388 kg

DRUGS (6)
  1. VIAGRA [Suspect]
     Indication: ERECTILE DYSFUNCTION
     Dosage: 50 MG (50 MG, 1 AS NECESASRY)
     Dates: end: 20050101
  2. INSULIN [Concomitant]
  3. ACTOS [Concomitant]
  4. ZOLOFT [Concomitant]
  5. FIBERMED (FIBRE, DIETARY) [Concomitant]
  6. GLUCOSAMINE SULFATE (GLUCOSAMINE SULFATE) [Concomitant]

REACTIONS (6)
  - ANGINA PECTORIS [None]
  - DIZZINESS [None]
  - DRUG EFFECT DECREASED [None]
  - FLUSHING [None]
  - HEADACHE [None]
  - VISUAL DISTURBANCE [None]
